FAERS Safety Report 6938175-2 (Version None)
Quarter: 2010Q3

REPORT INFORMATION
  Report Type: 
  Country: None (occurrence: None)
  Receive Date: 20100824
  Receipt Date: 20100811
  Transmission Date: 20110219
  Serious: Yes (Other)
  Sender: FDA-Public Use
  Company Number: US-BAYER-201036263GPV

PATIENT

DRUGS (1)
  1. SORAFENIB [Suspect]
     Indication: HEAD AND NECK CANCER
     Dosage: UNIT DOSE: 200 MG
     Route: 048

REACTIONS (1)
  - CEREBRAL ISCHAEMIA [None]
